FAERS Safety Report 9327742 (Version 2)
Quarter: 2013Q3

REPORT INFORMATION
  Report Type: Spontaneous
  Country: US (occurrence: US)
  Receive Date: 20130604
  Receipt Date: 20130708
  Transmission Date: 20140515
  Serious: No
  Sender: FDA-Public Use
  Company Number: US-AMGEN-USASP2013036506

PATIENT
  Age: 74 Year
  Sex: Male

DRUGS (2)
  1. ENBREL [Suspect]
     Indication: RHEUMATOID ARTHRITIS
     Dosage: 50 MG, QWK
     Dates: start: 20080901
  2. ENBREL [Suspect]

REACTIONS (4)
  - Injection site pain [Not Recovered/Not Resolved]
  - Injection site nodule [Recovered/Resolved]
  - Injection site induration [Recovered/Resolved]
  - Injection site haemorrhage [Recovered/Resolved]
